FAERS Safety Report 11301408 (Version 1)
Quarter: 2015Q3

REPORT INFORMATION
  Report Type: Spontaneous
  Country: US (occurrence: US)
  Receive Date: 20150722
  Receipt Date: 20150722
  Transmission Date: 20151125
  Serious: No
  Sender: FDA-Public Use
  Company Number: US-ELI_LILLY_AND_COMPANY-US201004006198

PATIENT
  Age: 12 Year
  Sex: Male

DRUGS (4)
  1. FLONAX [Concomitant]
     Dates: start: 2009
  2. FLOVENT [Concomitant]
     Active Substance: FLUTICASONE PROPIONATE
     Dates: start: 2009
  3. ALBUTEROL. [Concomitant]
     Active Substance: ALBUTEROL
     Dates: start: 2009
  4. HUMATROPE [Suspect]
     Active Substance: SOMATROPIN
     Dosage: 30 MG, DAILY (1/D)
     Dates: start: 200812

REACTIONS (2)
  - Malaise [Unknown]
  - Seasonal allergy [Unknown]

NARRATIVE: CASE EVENT DATE: 201004
